FAERS Safety Report 9017680 (Version 1)
Quarter: 2013Q1

REPORT INFORMATION
  Report Type: Spontaneous
  Country: US (occurrence: US)
  Receive Date: 20130118
  Receipt Date: 20130118
  Transmission Date: 20140127
  Serious: No
  Sender: FDA-Public Use
  Company Number: US-009507513-1301USA005479

PATIENT
  Age: 57 Year
  Sex: Male

DRUGS (1)
  1. SYLATRON [Suspect]
     Dosage: 6 MICROGRAM, QW
     Dates: start: 201207, end: 201208

REACTIONS (1)
  - Lymphocyte count decreased [Recovered/Resolved]
